FAERS Safety Report 5215853-7 (Version None)
Quarter: 2007Q1

REPORT INFORMATION
  Report Type: 
  Country: None (occurrence: None)
  Receive Date: 20070123
  Receipt Date: 20070117
  Transmission Date: 20070707
  Serious: Yes (Death)
  Sender: FDA-Public Use
  Company Number: JP-JPN-A200603937

PATIENT
  Sex: Male

DRUGS (3)
  1. FLOLAN [Suspect]
     Indication: HYPOPLASTIC LEFT HEART SYNDROME
     Route: 042
     Dates: start: 20041108
  2. NITRIC OXIDE [Concomitant]
     Route: 055
  3. FUROSEMIDE [Concomitant]
     Route: 065

REACTIONS (1)
  - FLUSHING [None]
